FAERS Safety Report 10235425 (Version 1)
Quarter: 2014Q2

REPORT INFORMATION
  Report Type: Spontaneous
  Country: US (occurrence: None)
  Receive Date: 20140612
  Receipt Date: 20140612
  Transmission Date: 20141212
  Serious: Yes (Disabling, Other)
  Sender: FDA-Public Use
  Company Number: None

PATIENT
  Age: 52 Year
  Sex: Female
  Weight: 56.7 kg

DRUGS (1)
  1. LEVAQUIN SCRIPT CALLED INTO PHARM [Suspect]

REACTIONS (18)
  - Lobar pneumonia [None]
  - Muscular weakness [None]
  - Hypertension [None]
  - Oedema [None]
  - Fall [None]
  - Mental impairment [None]
  - Abdominal pain upper [None]
  - Dyspepsia [None]
  - Drug abuse [None]
  - Haematochezia [None]
  - Gastrointestinal motility disorder [None]
  - Faecal incontinence [None]
  - Amnesia [None]
  - Dizziness [None]
  - Fatigue [None]
  - Hypoaesthesia [None]
  - Hypokinesia [None]
  - Ill-defined disorder [None]
